FAERS Safety Report 9802995 (Version 2)
Quarter: 2014Q3

REPORT INFORMATION
  Report Type: Spontaneous
  Country: US (occurrence: US)
  Receive Date: 20140108
  Receipt Date: 20140808
  Transmission Date: 20150326
  Serious: Yes (Hospitalization)
  Sender: FDA-Public Use
  Company Number: US-009507513-1401USA002024

PATIENT
  Sex: Female
  Weight: 65.32 kg

DRUGS (1)
  1. NUVARING [Suspect]
     Active Substance: ETHINYL ESTRADIOL\ETONOGESTREL
     Indication: CONTRACEPTION
     Route: 067

REACTIONS (14)
  - Pain [Not Recovered/Not Resolved]
  - No therapeutic response [Unknown]
  - Thrombophlebitis superficial [Unknown]
  - Drug ineffective [Unknown]
  - Adenotonsillectomy [Unknown]
  - Coagulopathy [Unknown]
  - Hypokalaemia [Unknown]
  - Fatigue [Not Recovered/Not Resolved]
  - Spinal deformity [Unknown]
  - Haemorrhagic anaemia [Unknown]
  - Anxiety [Unknown]
  - Deep vein thrombosis [Unknown]
  - Venous thrombosis [Unknown]
  - Pain in extremity [Unknown]

NARRATIVE: CASE EVENT DATE: 201108
